FAERS Safety Report 9381288 (Version 2)
Quarter: 2013Q3

REPORT INFORMATION
  Report Type: Spontaneous
  Country: US (occurrence: US)
  Receive Date: 20130703
  Receipt Date: 20130801
  Transmission Date: 20140515
  Serious: No
  Sender: FDA-Public Use
  Company Number: US-PFIZER INC-2013196087

PATIENT
  Age: 63 Year
  Sex: Female
  Weight: 95.24 kg

DRUGS (5)
  1. LYRICA [Suspect]
     Indication: NEURALGIA
     Dosage: 75 MG, 1X/DAY
     Route: 048
  2. LYRICA [Suspect]
     Dosage: 150 MG, 1X/DAY
     Route: 048
     Dates: end: 20130629
  3. FENOFIBRATE [Concomitant]
     Dosage: 145 MG, UNK
  4. GLIPIZIDE [Concomitant]
     Dosage: 10 MG, UNK
  5. LANTUS [Concomitant]
     Dosage: UNK, 1X/DAY

REACTIONS (2)
  - Drug ineffective [Not Recovered/Not Resolved]
  - Pain [Not Recovered/Not Resolved]
